FAERS Safety Report 14551459 (Version 1)
Quarter: 2018Q1

REPORT INFORMATION
  Report Type: Spontaneous
  Country: JP (occurrence: JP)
  Receive Date: 20180220
  Receipt Date: 20180220
  Transmission Date: 20180509
  Serious: Yes (Other)
  Sender: FDA-Public Use
  Company Number: JP-ABBVIE-18S-087-2262581-00

PATIENT
  Sex: Male

DRUGS (1)
  1. KLARICID [Suspect]
     Active Substance: CLARITHROMYCIN
     Indication: NASOPHARYNGITIS
     Route: 048

REACTIONS (1)
  - Chlamydial infection [Unknown]
